FAERS Safety Report 14681442 (Version 1)
Quarter: 2018Q1

REPORT INFORMATION
  Report Type: Spontaneous
  Country: US (occurrence: US)
  Receive Date: 20180326
  Receipt Date: 20180326
  Transmission Date: 20180509
  Serious: No
  Sender: FDA-Public Use
  Company Number: US-BAYER-2018-055826

PATIENT
  Age: 85 Year
  Sex: Female
  Weight: 54 kg

DRUGS (2)
  1. CLARITIN LIQUI-GELS [Suspect]
     Active Substance: LORATADINE
     Indication: NASOPHARYNGITIS
     Dosage: 1 DF, QD
     Route: 048
     Dates: start: 20180313, end: 20180313
  2. CLARITIN LIQUI-GELS [Suspect]
     Active Substance: LORATADINE
     Indication: HYPERSENSITIVITY
     Dosage: 5 DF, UNK

REACTIONS (3)
  - Oral pain [Recovered/Resolved]
  - Product leakage [Unknown]
  - Oral discomfort [Recovered/Resolved]

NARRATIVE: CASE EVENT DATE: 20180313
